FAERS Safety Report 7483804-0 (Version None)
Quarter: 2011Q2

REPORT INFORMATION
  Report Type: 
  Country: None (occurrence: None)
  Receive Date: 20110517
  Receipt Date: 20110514
  Transmission Date: 20111010
  Serious: Yes (Other)
  Sender: FDA-Public Use
  Company Number: US-PFIZER INC-2011104378

PATIENT
  Sex: Male

DRUGS (4)
  1. MAXZIDE [Interacting]
     Indication: BLOOD PRESSURE ABNORMAL
     Dosage: UNK
     Route: 048
  2. LIPITOR [Suspect]
     Indication: BLOOD CHOLESTEROL INCREASED
     Dosage: UNK
     Route: 048
     Dates: start: 20100101, end: 20110101
  3. DILTIAZEM [Interacting]
     Indication: BLOOD PRESSURE ABNORMAL
     Dosage: UNK
  4. LIPITOR [Interacting]
     Indication: BLOOD TRIGLYCERIDES INCREASED

REACTIONS (3)
  - DRUG INTERACTION [None]
  - MUSCLE ATROPHY [None]
  - MYALGIA [None]
